FAERS Safety Report 8908860 (Version 1)
Quarter: 2012Q4

REPORT INFORMATION
  Report Type: 
  Country: US (occurrence: US)
  Receive Date: 20121113
  Receipt Date: 20121113
  Transmission Date: 20130627
  Serious: No
  Sender: FDA-Public Use
  Company Number: US-AMGEN-USASP2012011808

PATIENT
  Age: 66 Year
  Sex: Female
  Weight: 83.9 kg

DRUGS (4)
  1. ENBREL [Suspect]
     Indication: RHEUMATOID ARTHRITIS
     Dosage: 25 mg, 2 times/wk
     Route: 058
  2. COD LIVER OIL [Concomitant]
     Dosage: UNK
  3. ZINC [Concomitant]
     Dosage: 30 mg, UNK
  4. VITAMIN E                          /00110501/ [Concomitant]
     Dosage: UNK

REACTIONS (1)
  - Atypical pneumonia [Recovered/Resolved]
